FAERS Safety Report 14369909 (Version 3)
Quarter: 2021Q2

REPORT INFORMATION
  Report Type: Other
  Country: JP (occurrence: JP)
  Receive Date: 20180110
  Receipt Date: 20210424
  Transmission Date: 20210716
  Serious: Yes (Death, Other)
  Sender: FDA-Public Use
  Company Number: JP-ROCHE-2049203

PATIENT

DRUGS (8)
  1. BEVACIZUMAB. [Suspect]
     Active Substance: BEVACIZUMAB
     Indication: COLORECTAL CANCER METASTATIC
     Route: 042
  2. IRINOTECAN [Suspect]
     Active Substance: IRINOTECAN
     Indication: COLORECTAL CANCER METASTATIC
     Route: 042
  3. CAPECITABINE. [Suspect]
     Active Substance: CAPECITABINE
     Indication: COLORECTAL CANCER METASTATIC
     Route: 048
  4. FLUOROURACIL. [Suspect]
     Active Substance: FLUOROURACIL
     Indication: COLORECTAL CANCER METASTATIC
     Route: 040
  5. TS?1 [Suspect]
     Active Substance: GIMERACIL\OTERACIL\TEGAFUR
     Indication: COLORECTAL CANCER METASTATIC
     Route: 048
  6. LEUCOVORIN. [Suspect]
     Active Substance: LEUCOVORIN
     Indication: COLORECTAL CANCER METASTATIC
     Route: 042
  7. OXALIPLATIN. [Suspect]
     Active Substance: OXALIPLATIN
     Indication: COLORECTAL CANCER METASTATIC
     Route: 042
  8. FLUOROURACIL. [Suspect]
     Active Substance: FLUOROURACIL
     Route: 041

REACTIONS (27)
  - Nausea [Unknown]
  - Rash [Unknown]
  - Skin exfoliation [Unknown]
  - Lacrimation increased [Unknown]
  - Hypertension [Unknown]
  - Blood bilirubin abnormal [Unknown]
  - Gastrointestinal perforation [Unknown]
  - Vomiting [Unknown]
  - Leukopenia [Unknown]
  - Anaemia [Unknown]
  - Alanine aminotransferase abnormal [Unknown]
  - Ileus paralytic [Unknown]
  - Febrile neutropenia [Unknown]
  - Thrombocytopenia [Unknown]
  - Aspartate aminotransferase abnormal [Unknown]
  - Mucosal inflammation [Unknown]
  - Death [Fatal]
  - Blood creatinine abnormal [Unknown]
  - Proteinuria [Unknown]
  - Fatigue [Unknown]
  - Peripheral sensory neuropathy [Unknown]
  - Stomatitis [Unknown]
  - Decreased appetite [Unknown]
  - Diarrhoea [Unknown]
  - Neutropenia [Unknown]
  - Palmar-plantar erythrodysaesthesia syndrome [Unknown]
  - Embolism [Unknown]
